FAERS Safety Report 7792388-9 (Version None)
Quarter: 2011Q4

REPORT INFORMATION
  Report Type: 
  Country: None (occurrence: None)
  Receive Date: 20111003
  Receipt Date: 20110929
  Transmission Date: 20120403
  Serious: Yes (Death)
  Sender: FDA-Public Use
  Company Number: PHHY2011SV86598

PATIENT
  Age: 82 Year
  Sex: Female

DRUGS (1)
  1. EXELON [Suspect]
     Dosage: 3 MG, UNK

REACTIONS (1)
  - DEATH [None]
